FAERS Safety Report 23828048 (Version 4)
Quarter: 2024Q2

REPORT INFORMATION
  Report Type: Report from Study
  Country: CL (occurrence: CL)
  Receive Date: 20240507
  Receipt Date: 20240630
  Transmission Date: 20240716
  Serious: Yes (Other)
  Sender: FDA-Public Use
  Company Number: CL-JNJFOC-20231243283

PATIENT
  Age: 60 Year
  Sex: Female

DRUGS (10)
  1. SIMPONI [Suspect]
     Active Substance: GOLIMUMAB
     Indication: Psoriatic arthropathy
     Route: 058
     Dates: start: 20230804
  2. SIMPONI [Suspect]
     Active Substance: GOLIMUMAB
     Route: 058
  3. METHOTREXATE [Suspect]
     Active Substance: METHOTREXATE
     Indication: Product used for unknown indication
     Route: 065
  4. OMEPRAZOLE [Concomitant]
     Active Substance: OMEPRAZOLE
  5. LOSARTAN [Concomitant]
     Active Substance: LOSARTAN
  6. METFORMIN [Concomitant]
     Active Substance: METFORMIN HYDROCHLORIDE
  7. IMIPRAMINE [Concomitant]
     Active Substance: IMIPRAMINE
  8. COMPLEX B [VITAMIN B COMPLEX] [Concomitant]
  9. ATORVASTATIN [Concomitant]
     Active Substance: ATORVASTATIN
  10. FOLIC ACID [Concomitant]
     Active Substance: FOLIC ACID

REACTIONS (12)
  - Pneumonia [Recovering/Resolving]
  - Drug-induced liver injury [Recovering/Resolving]
  - Psoriatic arthropathy [Not Recovered/Not Resolved]
  - Hypoaesthesia [Unknown]
  - Amnesia [Recovering/Resolving]
  - Nasopharyngitis [Unknown]
  - Sciatic nerve injury [Unknown]
  - Groin pain [Unknown]
  - Gastritis [Unknown]
  - Hypertension [Unknown]
  - Therapeutic response decreased [Unknown]
  - Product dose omission issue [Unknown]

NARRATIVE: CASE EVENT DATE: 20240510
